FAERS Safety Report 9285222 (Version 1)
Quarter: 2013Q2

REPORT INFORMATION
  Report Type: Spontaneous
  Country: CN (occurrence: None)
  Receive Date: 20130507
  Receipt Date: 20130507
  Transmission Date: 20140414
  Serious: Yes (Hospitalization)
  Sender: FDA-Public Use
  Company Number: TW-INDICUS PHARMA-000083

PATIENT
  Age: 56 Year
  Sex: Female

DRUGS (2)
  1. METFORMIN [Suspect]
  2. ZOLPIDEM [Suspect]

REACTIONS (13)
  - Lactic acidosis [None]
  - Respiratory acidosis [None]
  - Intentional overdose [None]
  - Suicide attempt [None]
  - Agitation [None]
  - Metabolic acidosis [None]
  - Coma scale abnormal [None]
  - Hypotension [None]
  - Hypothermia [None]
  - Haemodialysis [None]
  - Respiratory failure [None]
  - Blood creatinine increased [None]
  - Blood potassium decreased [None]
